FAERS Safety Report 9656424 (Version 1)
Quarter: 2013Q4

REPORT INFORMATION
  Report Type: Spontaneous
  Country: US (occurrence: US)
  Receive Date: 20131030
  Receipt Date: 20131030
  Transmission Date: 20140711
  Serious: No
  Sender: FDA-Public Use
  Company Number: US-ENDO PHARMACEUTICALS INC.-HCDA20130023

PATIENT
  Age: 29 Year
  Sex: Male

DRUGS (2)
  1. HYDROCODONE/ACETAMINOPHEN 10MG/500MG [Suspect]
     Indication: PAIN
     Dosage: 10/500 MG
     Route: 048
     Dates: start: 2010
  2. WARFARIN [Concomitant]
     Indication: THROMBOSIS
     Dosage: UNK
     Route: 048

REACTIONS (1)
  - Depression [Unknown]
